FAERS Safety Report 20108416 (Version 1)
Quarter: 2021Q4

REPORT INFORMATION
  Report Type: Spontaneous
  Country: US (occurrence: US)
  Receive Date: 20211124
  Receipt Date: 20211124
  Transmission Date: 20220303
  Serious: No
  Sender: FDA-Public Use
  Company Number: US-PERRIGO-21US008768

PATIENT
  Age: 72 Year
  Sex: Female
  Weight: 53.515 kg

DRUGS (3)
  1. POLYETHYLENE GLYCOL 3350 [Suspect]
     Active Substance: POLYETHYLENE GLYCOL 3350
     Indication: Constipation
     Dosage: 17 G, QD, PRN
     Route: 048
     Dates: start: 202010
  2. POLYETHYLENE GLYCOL 3350 [Suspect]
     Active Substance: POLYETHYLENE GLYCOL 3350
     Dosage: SLIGHTLY MORE THAN 17 G, SINGLE
     Route: 048
     Dates: start: 20210622, end: 20210622
  3. MILK OF MAGNESIA [Concomitant]
     Active Substance: MAGNESIUM HYDROXIDE
     Indication: Constipation prophylaxis
     Dosage: UNKNOWN, PRN
     Route: 065

REACTIONS (3)
  - Abdominal pain [Recovered/Resolved]
  - Therapeutic product effect variable [Unknown]
  - Incorrect dose administered [Recovered/Resolved]

NARRATIVE: CASE EVENT DATE: 20201001
